FAERS Safety Report 10910639 (Version 1)
Quarter: 2015Q1

REPORT INFORMATION
  Report Type: Spontaneous
  Country: US (occurrence: US)
  Receive Date: 20150312
  Receipt Date: 20150312
  Transmission Date: 20150721
  Serious: No
  Sender: FDA-Public Use
  Company Number: US-SA-2015SA005399

PATIENT
  Age: 38 Year
  Sex: Female

DRUGS (3)
  1. NASACORT ALLERGY 24HR [Suspect]
     Active Substance: TRIAMCINOLONE ACETONIDE
     Indication: PARANASAL SINUS DISCOMFORT
     Dosage: DAILY DOSE: 2 SPRAYS IN EACH NOSTRIL
     Route: 065
  2. NASACORT ALLERGY 24HR [Suspect]
     Active Substance: TRIAMCINOLONE ACETONIDE
     Indication: PARANASAL SINUS DISCOMFORT
     Dosage: TAKEN FROM: 2.5 WEEKS AGO?DAILY DOSE: 1 SPRAYS IN EACH NOSTRIL
     Route: 065
     Dates: end: 201501
  3. NASACORT ALLERGY 24HR [Suspect]
     Active Substance: TRIAMCINOLONE ACETONIDE
     Indication: PARANASAL SINUS DISCOMFORT
     Dosage: TAKEN FROM: 2.5 WEEKS AGO?DAILY DOSE: 2 SPRAYS IN EACH NOSTRIL
     Route: 065

REACTIONS (3)
  - Condition aggravated [Recovered/Resolved]
  - Headache [Recovered/Resolved]
  - Paranasal sinus discomfort [Recovered/Resolved]
